FAERS Safety Report 4952897-4 (Version None)
Quarter: 2006Q1

REPORT INFORMATION
  Report Type: 
  Country: None (occurrence: None)
  Receive Date: 20060324
  Receipt Date: 20060310
  Transmission Date: 20060701
  Serious: Yes (Hospitalization)
  Sender: FDA-Public Use
  Company Number: PHBS2006JP03879

PATIENT
  Age: 67 Year
  Sex: Female

DRUGS (2)
  1. ARIMIDEX [Concomitant]
     Dosage: 1 MG/D
     Route: 048
  2. AREDIA [Suspect]
     Indication: METASTASES TO BONE
     Dosage: 90 MG EVERY 4 WEEKS
     Route: 042
     Dates: start: 20030801, end: 20060201

REACTIONS (8)
  - BLOOD ALBUMIN DECREASED [None]
  - BLOOD CHOLESTEROL INCREASED [None]
  - BLOOD CREATININE INCREASED [None]
  - BLOOD UREA INCREASED [None]
  - BLOOD URINE PRESENT [None]
  - CREATININE RENAL CLEARANCE DECREASED [None]
  - NEPHROTIC SYNDROME [None]
  - PROTEINURIA [None]
